FAERS Safety Report 10090894 (Version 1)
Quarter: 2014Q2

REPORT INFORMATION
  Report Type: Spontaneous
  Country: US (occurrence: US)
  Receive Date: 20140421
  Receipt Date: 20140421
  Transmission Date: 20141212
  Serious: Yes (Other)
  Sender: FDA-Public Use
  Company Number: US-GILEAD-2012-0063502

PATIENT
  Sex: Female

DRUGS (3)
  1. LETAIRIS [Suspect]
     Indication: CONNECTIVE TISSUE DISORDER
     Dosage: 5 MG, QD
     Route: 048
     Dates: start: 20120515
  2. LETAIRIS [Suspect]
     Indication: PULMONARY HYPERTENSION
  3. ADCIRCA [Suspect]

REACTIONS (1)
  - Therapeutic response decreased [Not Recovered/Not Resolved]
